FAERS Safety Report 9394545 (Version 1)
Quarter: 2013Q3

REPORT INFORMATION
  Report Type: Report from Study
  Country: AR (occurrence: AR)
  Receive Date: 20130711
  Receipt Date: 20130711
  Transmission Date: 20140515
  Serious: Yes (Life-Threatening)
  Sender: FDA-Public Use
  Company Number: PHHY2013AR073344

PATIENT
  Sex: Female

DRUGS (1)
  1. DIOVAN [Suspect]
     Dosage: 320 MG, UNK
     Route: 048

REACTIONS (1)
  - Feeling abnormal [Unknown]
